FAERS Safety Report 8440531-0 (Version None)
Quarter: 2012Q2

REPORT INFORMATION
  Report Type: 
  Country: None (occurrence: None)
  Receive Date: 20120615
  Receipt Date: 20120530
  Transmission Date: 20120825
  Serious: Yes (Other)
  Sender: FDA-Public Use
  Company Number: JP-PFIZER INC-2012101767

PATIENT
  Age: 66 Year
  Sex: Male

DRUGS (5)
  1. LINEZOLID [Suspect]
     Indication: INTERVERTEBRAL DISCITIS
     Dosage: 1200 MG DAILY
     Route: 042
     Dates: start: 20111121, end: 20111205
  2. VANCOMYCIN HYCHLORIDE [Suspect]
     Indication: PNEUMONIA BACTERIAL
     Route: 042
  3. CEFTRIAXONE [Concomitant]
     Indication: PNEUMONIA BACTERIAL
     Route: 042
  4. VANCOMYCIN HYCHLORIDE [Suspect]
     Indication: MENINGITIS
  5. CEFTRIAXONE [Concomitant]
     Indication: MENINGITIS

REACTIONS (2)
  - PANCYTOPENIA [None]
  - RENAL DISORDER [None]
